FAERS Safety Report 5894436-X (Version None)
Quarter: 2008Q3

REPORT INFORMATION
  Report Type: 
  Country: None (occurrence: None)
  Receive Date: 20080923
  Receipt Date: 20080923
  Transmission Date: 20090109
  Serious: Yes (Other)
  Sender: FDA-Public Use
  Company Number: None

PATIENT
  Sex: Female
  Weight: 84.8226 kg

DRUGS (1)
  1. ECONAZOLE NITRATE [Suspect]
     Indication: TINEA PEDIS
     Dosage: APPLY TO FEET BID
     Dates: start: 20080919

REACTIONS (3)
  - APPLICATION SITE DISCHARGE [None]
  - RASH ERYTHEMATOUS [None]
  - RASH PRURITIC [None]
